FAERS Safety Report 5803706-2 (Version None)
Quarter: 2008Q3

REPORT INFORMATION
  Report Type: 
  Country: None (occurrence: None)
  Receive Date: 20080708
  Receipt Date: 20071004
  Transmission Date: 20090109
  Serious: No
  Sender: FDA-Public Use
  Company Number: US-AMGEN-KDL244019

PATIENT
  Sex: Female

DRUGS (5)
  1. KINERET [Suspect]
     Indication: RHEUMATOID ARTHRITIS
     Route: 058
     Dates: start: 20061011
  2. METHOTREXATE [Concomitant]
     Dates: start: 20040801
  3. FOLIC ACID [Concomitant]
     Dates: start: 20040801
  4. CELEBREX [Concomitant]
     Dates: start: 20040801
  5. LEXAPRO [Concomitant]
     Dates: start: 20070501

REACTIONS (6)
  - CHEST PAIN [None]
  - COLD SWEAT [None]
  - DIZZINESS [None]
  - HYPERHIDROSIS [None]
  - NAUSEA [None]
  - VERTIGO [None]
